FAERS Safety Report 8580873 (Version 4)
Quarter: 2013Q3

REPORT INFORMATION
  Report Type: Report from Study
  Country: MX (occurrence: MX)
  Receive Date: 20120525
  Receipt Date: 20130717
  Transmission Date: 20140515
  Serious: Yes (Hospitalization)
  Sender: FDA-Public Use
  Company Number: PHHY2012MX043550

PATIENT
  Age: 77 Year
  Sex: Female

DRUGS (5)
  1. RASILEZ [Suspect]
     Indication: HYPERTENSION
     Dosage: 1 DF, (300 MG) DAILY
     Route: 048
  2. RASILEZ [Suspect]
     Dosage: 1 DF, (300 MG) DAILY
     Route: 048
  3. ONBREZ [Suspect]
     Indication: CHRONIC OBSTRUCTIVE PULMONARY DISEASE
     Dosage: 150 UG, UNK
  4. MUCOSOLVAN [Concomitant]
     Dosage: UNK UKN, UNK
  5. INSULIN MALOC [Concomitant]
     Dosage: 50 IU IN THE MORNING AND 20 IU IN THE NIGHT

REACTIONS (4)
  - Cough [Not Recovered/Not Resolved]
  - Peripheral nerve lesion [Recovered/Resolved with Sequelae]
  - Blood glucose increased [Not Recovered/Not Resolved]
  - Discomfort [Not Recovered/Not Resolved]
